FAERS Safety Report 9361947 (Version 1)
Quarter: 2013Q2

REPORT INFORMATION
  Report Type: Spontaneous
  Country: US (occurrence: US)
  Receive Date: 20130621
  Receipt Date: 20130621
  Transmission Date: 20140414
  Serious: No
  Sender: FDA-Public Use
  Company Number: US-BAYER-2013-076796

PATIENT
  Age: 56 Year
  Sex: Female
  Weight: 66 kg

DRUGS (10)
  1. ESTRADIOL HEMIHYDRATE (PATCH) [Suspect]
     Indication: HORMONE REPLACEMENT THERAPY
     Dosage: 1 DF, OW
     Route: 062
     Dates: start: 201208
  2. PREMARIN [Concomitant]
     Indication: HORMONE THERAPY
     Dosage: UNK
     Route: 067
     Dates: start: 20130418
  3. PREMARIN [Concomitant]
     Indication: VULVOVAGINAL DRYNESS
  4. PREMARIN [Concomitant]
     Indication: RASH
  5. PREMARIN [Concomitant]
     Indication: UNEVALUABLE EVENT
  6. TRAZODONE [Concomitant]
     Indication: SLEEP DISORDER
     Dosage: 100 MG, QD
     Dates: start: 200112
  7. PROTONIX [Concomitant]
     Indication: EROSIVE OESOPHAGITIS
     Dosage: 40 MG, QD
     Dates: start: 200110
  8. VITAMIN B COMPLEX [Concomitant]
     Indication: UNEVALUABLE EVENT
     Dosage: UNK
  9. VITAMIN D [Concomitant]
     Indication: UNEVALUABLE EVENT
     Dosage: UNK
  10. MAGNESIUM [Concomitant]
     Indication: UNEVALUABLE EVENT
     Dosage: UNK

REACTIONS (4)
  - Hot flush [Recovered/Resolved]
  - Migraine [Recovered/Resolved]
  - Night sweats [None]
  - Product adhesion issue [None]
